FAERS Safety Report 5776159-0 (Version None)
Quarter: 2008Q2

REPORT INFORMATION
  Report Type: 
  Country: None (occurrence: None)
  Receive Date: 20080613
  Receipt Date: 20080528
  Transmission Date: 20081010
  Serious: Yes (Hospitalization)
  Sender: FDA-Public Use
  Company Number: 2008PV000049

PATIENT
  Age: 42 Year
  Sex: Male

DRUGS (2)
  1. DEPOCYT [Suspect]
     Indication: LEUKAEMIA
     Dosage: 50 MG; 1X; INTH
     Route: 037
     Dates: start: 20080228, end: 20080228
  2. DASATINIB (DASATINIB) [Suspect]
     Dosage: 50 MG; TID; PO
     Route: 048
     Dates: start: 20060318, end: 20080228

REACTIONS (1)
  - LEUKOENCEPHALOPATHY [None]
